FAERS Safety Report 8813978 (Version 1)
Quarter: 2012Q4

REPORT INFORMATION
  Report Type: 
  Country: US (occurrence: US)
  Receive Date: 20120928
  Receipt Date: 20120928
  Transmission Date: 20130627
  Serious: Yes (Death, Other)
  Sender: FDA-Public Use
  Company Number: US-ELI_LILLY_AND_COMPANY-US201209007428

PATIENT
  Age: 79 Year
  Sex: Male

DRUGS (1)
  1. ALIMTA [Suspect]
     Dosage: 830 mg, single
     Route: 042
     Dates: start: 20120911

REACTIONS (3)
  - Death [Fatal]
  - Sepsis [Unknown]
  - Pancytopenia [Unknown]
